FAERS Safety Report 14689255 (Version 2)
Quarter: 2019Q4

REPORT INFORMATION
  Report Type: Spontaneous
  Country: DE (occurrence: DE)
  Receive Date: 20180328
  Receipt Date: 20191004
  Transmission Date: 20200122
  Serious: Yes (Hospitalization, Other)
  Sender: FDA-Public Use
  Company Number: DE-SA-2018SA028162

PATIENT
  Age: 53 Year
  Sex: Female

DRUGS (40)
  1. TRAMADOL. [Concomitant]
     Active Substance: TRAMADOL
     Dosage: UNK UNK,UNK
     Route: 065
  2. PANTOZOL [Concomitant]
     Active Substance: PANTOPRAZOLE SODIUM
     Dosage: UNK UNK, QD
     Route: 048
  3. CELLCEPT [Concomitant]
     Active Substance: MYCOPHENOLATE MOFETIL\MYCOPHENOLATE MOFETIL HYDROCHLORIDE
  4. SPASMEX [PHLOROGLUCINOL] [Concomitant]
     Dosage: UNK UNK, BID
  5. BACLOFEN. [Concomitant]
     Active Substance: BACLOFEN
     Dosage: UNK UNK, BID
  6. DEKRISTOL [Concomitant]
     Active Substance: CHOLECALCIFEROL
  7. PREDNISOLONE. [Concomitant]
     Active Substance: PREDNISOLONE
     Dosage: UNK UNK,QD
     Route: 065
  8. ENOXAPARIN [Concomitant]
     Active Substance: ENOXAPARIN
  9. AMPHO MORONAL [Concomitant]
     Active Substance: AMPHOTERICIN B
     Dosage: UNK UNK, QID
  10. POTASSIUM [Concomitant]
     Active Substance: POTASSIUM
     Dosage: UNK UNK, TID
  11. HUMINSULIN NORMAL [Concomitant]
     Active Substance: INSULIN HUMAN
     Dosage: 8 IU, QD
     Route: 058
  12. PANTOPRAZOLE [Concomitant]
     Active Substance: PANTOPRAZOLE
     Dosage: UNK UNK,QD
     Route: 065
  13. MAGNESIUM [Concomitant]
     Active Substance: MAGNESIUM
     Dosage: UNK UNK,QD
     Route: 065
  14. THYMOGLOBULIN [Concomitant]
     Active Substance: LAPINE T-LYMPHOCYTE IMMUNE GLOBULIN
  15. VALCYTE [Concomitant]
     Active Substance: VALGANCICLOVIR HYDROCHLORIDE
     Dosage: UNK UNK, BID
  16. FOLSAN [Concomitant]
     Active Substance: FOLIC ACID
     Dosage: UNK UNK, QD
  17. PREGABALIN. [Concomitant]
     Active Substance: PREGABALIN
     Dosage: UNK UNK,UNK
     Route: 065
  18. MOVICOL [Concomitant]
     Active Substance: POLYETHYLENE GLYCOL 3350\POTASSIUM CHLORIDE\SODIUM BICARBONATE\SODIUM CHLORIDE
     Dosage: UNK UNK,QD
     Route: 065
  19. SANDOCAL [CALCIUM GLUBIONATE] [Concomitant]
  20. TACROLIMUS. [Concomitant]
     Active Substance: TACROLIMUS
  21. TIZANIDINE. [Concomitant]
     Active Substance: TIZANIDINE
     Dosage: UNK UNK, TID
     Route: 048
  22. SPIRONOLACTONE. [Concomitant]
     Active Substance: SPIRONOLACTONE
     Dosage: UNK UNK, BID
  23. FAMPYRA [Concomitant]
     Active Substance: DALFAMPRIDINE
     Dosage: UNK UNK,UNK
     Route: 065
  24. OXYCODONE [Concomitant]
     Active Substance: OXYCODONE
     Dosage: UNK UNK,UNK
     Route: 065
  25. HYDROMORPHONE [Concomitant]
     Active Substance: HYDROMORPHONE
     Dosage: UNK UNK,BID
     Route: 065
  26. CLEXANE [Concomitant]
     Active Substance: ENOXAPARIN SODIUM
     Dosage: UNK UNK,QD
     Route: 065
  27. CHOLESTYRAMINE. [Concomitant]
     Active Substance: CHOLESTYRAMINE
  28. URSOFALK [Concomitant]
     Active Substance: URSODIOL
     Dosage: UNK UNK, TID
  29. GABAPENTIN. [Concomitant]
     Active Substance: GABAPENTIN
     Dosage: UNK UNK, TID
     Route: 048
  30. SPASMEX [TROSPIUM CHLORIDE] [Concomitant]
     Dosage: UNK UNK, BID
  31. BIFITERAL [Concomitant]
     Active Substance: LACTULOSE
     Dosage: 1 - 1 - 1
     Route: 065
  32. DIMETICONE [Concomitant]
     Active Substance: DIMETHICONE
     Dosage: UNK UNK,QID
     Route: 065
  33. BASILIXIMAB [Concomitant]
     Active Substance: BASILIXIMAB
  34. THIAMINE. [Concomitant]
     Active Substance: THIAMINE
  35. AUBAGIO [Suspect]
     Active Substance: TERIFLUNOMIDE
     Indication: MULTIPLE SCLEROSIS
     Dosage: 14 MG,QD
     Route: 048
     Dates: start: 201507, end: 201801
  36. METAMIZOLE SODIUM [Concomitant]
     Active Substance: METAMIZOLE SODIUM
     Dosage: UNK UNK,TID
     Route: 065
  37. SATIVEX [Concomitant]
     Active Substance: NABIXIMOLS
     Dosage: UNK UNK,UNK
     Route: 065
  38. SPASMEX [TROSPIUM CHLORIDE] [Concomitant]
     Dosage: UNK UNK, BID
     Route: 048
  39. CHLORHEXIDINE [CHLORHEXIDINE GLUCONATE] [Concomitant]
     Dosage: UNK UNK, BID
  40. CELLCEPT [Concomitant]
     Active Substance: MYCOPHENOLATE MOFETIL\MYCOPHENOLATE MOFETIL HYDROCHLORIDE
     Dosage: UNK UNK, BID

REACTIONS (44)
  - Purpura [Unknown]
  - Splenomegaly [Unknown]
  - Dizziness [Unknown]
  - Pruritus [Unknown]
  - Dehydration [Unknown]
  - Abdominal pain lower [Unknown]
  - Malaise [Unknown]
  - Type 1 diabetes mellitus [Unknown]
  - Pyrexia [Unknown]
  - Hepatic cyst [Unknown]
  - Folate deficiency [Unknown]
  - International normalised ratio decreased [Unknown]
  - Hepatic encephalopathy [Unknown]
  - Hepatotoxicity [Unknown]
  - Fibroadenoma of breast [Unknown]
  - Urinary incontinence [Unknown]
  - Arrhythmia [Unknown]
  - Transplant rejection [Unknown]
  - Cholecystitis chronic [Unknown]
  - Cytomegalovirus infection [Unknown]
  - Drug-induced liver injury [Unknown]
  - Urge incontinence [Unknown]
  - Asterixis [Unknown]
  - Coma [Unknown]
  - Ascites [Unknown]
  - Hepatic failure [Unknown]
  - Arthralgia [Unknown]
  - Normochromic normocytic anaemia [Unknown]
  - Hepatomegaly [Unknown]
  - Vomiting [Unknown]
  - Alanine aminotransferase increased [Unknown]
  - Urinary tract infection [Unknown]
  - Citrobacter infection [Unknown]
  - Nocturia [Unknown]
  - Transaminases increased [Unknown]
  - Rash [Unknown]
  - Jaundice [Unknown]
  - Nitrite urine present [Unknown]
  - Asthenia [Unknown]
  - Lymph node pain [Unknown]
  - Hypotension [Unknown]
  - Hepatic necrosis [Unknown]
  - Pseudarthrosis [Unknown]
  - Dry mouth [Unknown]

NARRATIVE: CASE EVENT DATE: 201801
